FAERS Safety Report 14097913 (Version 4)
Quarter: 2017Q4

REPORT INFORMATION
  Report Type: Spontaneous
  Country: JP (occurrence: JP)
  Receive Date: 20171017
  Receipt Date: 20171114
  Transmission Date: 20180321
  Serious: Yes (Hospitalization)
  Sender: FDA-Public Use
  Company Number: JP-ROCHE-2010066

PATIENT
  Age: 8 Year
  Sex: Male
  Weight: 26 kg

DRUGS (5)
  1. CARBOCISTEINE [Concomitant]
     Active Substance: CARBOCYSTEINE
     Dosage: DOSAGE IS UNCERTAIN.
     Route: 065
     Dates: start: 20170829, end: 20171005
  2. PREDONINE [Concomitant]
     Active Substance: PREDNISOLONE
     Dosage: DOSAGE IS UNCERTAIN.
     Route: 065
     Dates: start: 201605
  3. ONEALFA [Concomitant]
     Active Substance: ALFACALCIDOL
     Dosage: DOSAGE IS UNCERTAIN.
     Route: 065
     Dates: start: 20170825, end: 20171005
  4. ACTEMRA [Suspect]
     Active Substance: TOCILIZUMAB
     Indication: STILL^S DISEASE
     Dosage: MOST RECENT DOSE:25/SEP/2017
     Route: 041
     Dates: start: 20170904
  5. LANSOPRAZOLE. [Concomitant]
     Active Substance: LANSOPRAZOLE
     Dosage: DOSAGE IS UNCERTAIN.
     Route: 048
     Dates: start: 20160914

REACTIONS (4)
  - Leukoencephalopathy [Recovering/Resolving]
  - Histiocytosis haematophagic [Recovering/Resolving]
  - Interleukin level increased [Unknown]
  - Haematuria [Unknown]

NARRATIVE: CASE EVENT DATE: 20171005
